FAERS Safety Report 24096900 (Version 1)
Quarter: 2024Q3

REPORT INFORMATION
  Report Type: Report from Study
  Country: MX (occurrence: MX)
  Receive Date: 20240716
  Receipt Date: 20240716
  Transmission Date: 20241017
  Serious: Yes (Other)
  Sender: NOVARTIS
  Company Number: MX-002147023-NVSC2024MX145054

PATIENT
  Sex: Female

DRUGS (3)
  1. HYDROCHLOROTHIAZIDE\VALSARTAN [Suspect]
     Active Substance: HYDROCHLOROTHIAZIDE\VALSARTAN
     Indication: Product used for unknown indication
     Dosage: 320/12.5 MG (15 YEARS AGO)
     Route: 048
  2. EXETIN A [Concomitant]
     Indication: Product used for unknown indication
     Dosage: 1 DOSAGE FORM(2000U)ON  WEDNESDAYS AND SATURDAYS
     Route: 030
     Dates: start: 20240103
  3. DECA-DURABOLIN [Concomitant]
     Active Substance: NANDROLONE DECANOATE
     Indication: Product used for unknown indication
     Dosage: AMPOULE 1 (50 MG), QMO
     Route: 030
     Dates: start: 20240103

REACTIONS (2)
  - Renal failure [Unknown]
  - Nephropathy toxic [Unknown]
